FAERS Safety Report 8374057-X (Version None)
Quarter: 2012Q2

REPORT INFORMATION
  Report Type: 
  Country: None (occurrence: None)
  Receive Date: 20120518
  Receipt Date: 20120518
  Transmission Date: 20120825
  Serious: Yes (Other)
  Sender: FDA-Public Use
  Company Number: None

PATIENT
  Age: 67 Year
  Sex: Male
  Weight: 74.8435 kg

DRUGS (1)
  1. CIPROFLOXACIN HCL [Suspect]
     Indication: PROSTATE INFECTION
     Dosage: 500MG X2 ORALLY
     Route: 048

REACTIONS (5)
  - GINGIVAL BLEEDING [None]
  - HAEMORRHAGE [None]
  - FAECES DISCOLOURED [None]
  - SYNCOPE [None]
  - DEHYDRATION [None]
